FAERS Safety Report 9753728 (Version 3)
Quarter: 2015Q3

REPORT INFORMATION
  Report Type: Spontaneous
  Country: US (occurrence: US)
  Receive Date: 20131213
  Receipt Date: 20150805
  Transmission Date: 20151125
  Serious: No
  Sender: FDA-Public Use
  Company Number: US-GILEAD-2010-0026521

PATIENT
  Age: 54 Year
  Sex: Female
  Weight: 87.54 kg

DRUGS (24)
  1. DOXEPIN [Concomitant]
     Active Substance: DOXEPIN
  2. SYNTHROID [Concomitant]
     Active Substance: LEVOTHYROXINE SODIUM
  3. LISINOPRIL. [Concomitant]
     Active Substance: LISINOPRIL
  4. CARAFATE [Concomitant]
     Active Substance: SUCRALFATE
  5. LETAIRIS [Suspect]
     Active Substance: AMBRISENTAN
     Indication: PULMONARY ARTERIAL HYPERTENSION
     Route: 048
     Dates: start: 20091231
  6. HUMALOG [Concomitant]
     Active Substance: INSULIN LISPRO
  7. REQUIP [Concomitant]
     Active Substance: ROPINIROLE HYDROCHLORIDE
  8. PARACETAMOL/HYDROCODONE BITARTRATE [Concomitant]
  9. LUNESTA [Concomitant]
     Active Substance: ESZOPICLONE
  10. VITAMIN D [Concomitant]
     Active Substance: CHOLECALCIFEROL
  11. CARBIDOPA-LEVO [Concomitant]
     Active Substance: CARBIDOPA\LEVODOPA
  12. TOPIRAMATE. [Concomitant]
     Active Substance: TOPIRAMATE
  13. HYDROCODONE [Concomitant]
     Active Substance: HYDROCODONE
  14. KLONOPIN [Concomitant]
     Active Substance: CLONAZEPAM
  15. SPIRONOLACTONE. [Concomitant]
     Active Substance: SPIRONOLACTONE
  16. LIPITOR [Concomitant]
     Active Substance: ATORVASTATIN CALCIUM
  17. LEXAPRO [Concomitant]
     Active Substance: ESCITALOPRAM OXALATE
  18. PROTONIX [Concomitant]
     Active Substance: PANTOPRAZOLE SODIUM
  19. DILTIAZEM [Concomitant]
     Active Substance: DILTIAZEM
  20. COUMADIN [Concomitant]
     Active Substance: WARFARIN SODIUM
  21. TIKOSYN [Concomitant]
     Active Substance: DOFETILIDE
  22. POTASSIUM CHLORIDE. [Concomitant]
     Active Substance: POTASSIUM CHLORIDE
  23. LANTUS [Concomitant]
     Active Substance: INSULIN GLARGINE
  24. MIRALAX [Concomitant]
     Active Substance: POLYETHYLENE GLYCOL 3350

REACTIONS (2)
  - Nasal congestion [Unknown]
  - Sinusitis [Unknown]
